FAERS Safety Report 8934622 (Version 1)
Quarter: 2012Q4

REPORT INFORMATION
  Report Type: 
  Country: US (occurrence: US)
  Receive Date: 20121129
  Receipt Date: 20121129
  Transmission Date: 20130627
  Serious: Yes (Hospitalization)
  Sender: FDA-Public Use
  Company Number: US-ELI_LILLY_AND_COMPANY-US201211005270

PATIENT
  Age: 66 Year
  Sex: Female
  Weight: 46.26 kg

DRUGS (15)
  1. EFFIENT [Suspect]
     Indication: CORONARY ARTERIAL STENT INSERTION
     Dosage: 5 mg, UNK
     Dates: start: 2012
  2. ELAVIL [Concomitant]
     Dosage: 25 mg, UNK
  3. ASA [Concomitant]
     Dosage: 81 DF, UNK
  4. LIPITOR [Concomitant]
     Dosage: 40 mg, UNK
  5. CALCIUM [Concomitant]
  6. COLACE [Concomitant]
     Dosage: UNK, prn
  7. ALLEGRA [Concomitant]
  8. ROZA                               /01121602/ [Concomitant]
     Dosage: 20 mg, UNK
  9. LASIX                              /00032601/ [Concomitant]
     Dosage: 40 mg, UNK
  10. GABAPENTIN [Concomitant]
     Dosage: 300 mg, UNK
  11. SYNTHROID [Concomitant]
     Dosage: 50 ug, UNK
  12. MOBIC [Concomitant]
  13. PROTONIX [Concomitant]
     Dosage: 40 mg, UNK
  14. RANEXA [Concomitant]
     Dosage: 1 g, bid
  15. SPIRONOLACTONE [Concomitant]

REACTIONS (1)
  - Hypertension [Unknown]
